FAERS Safety Report 12619047 (Version 20)
Quarter: 2018Q4

REPORT INFORMATION
  Report Type: Report from Study
  Country: DE (occurrence: DE)
  Receive Date: 20160803
  Receipt Date: 20181216
  Transmission Date: 20190204
  Serious: Yes (Death, Life-Threatening, Hospitalization, Other)
  Sender: FDA-Public Use
  Company Number: PHHY2016DE104646

PATIENT
  Age: 71 Year
  Sex: Male

DRUGS (19)
  1. TASIGNA [Suspect]
     Active Substance: NILOTINIB
     Indication: CHRONIC MYELOID LEUKAEMIA
     Dosage: 600 MG, QD
     Route: 048
     Dates: start: 20150613
  2. RAMIPRIL. [Concomitant]
     Active Substance: RAMIPRIL
     Indication: HYPERTENSION
     Dosage: 10 MG, QD
     Route: 065
     Dates: start: 20150626
  3. CARBIMAZOLE [Concomitant]
     Active Substance: CARBIMAZOLE
     Indication: HYPERTHYROIDISM
     Dosage: 10 MG, QD
     Route: 065
     Dates: start: 20150630
  4. NITRO [Concomitant]
     Active Substance: NITROGLYCERIN
     Indication: HYPERTENSION
     Dosage: 0.8 MG, QD
     Route: 065
     Dates: start: 20160415, end: 20160415
  5. ALDACTONE [Concomitant]
     Active Substance: SPIRONOLACTONE
     Indication: HYPOKALAEMIA
     Dosage: 25 MG, QD (DISCONTINUED IN 2017)
     Route: 065
     Dates: start: 201703, end: 2017
  6. NOVALGIN (METAMIZOLE SODIUM) [Concomitant]
     Active Substance: METAMIZOLE SODIUM
     Indication: PAIN
     Dosage: 3 G, QD
     Route: 065
     Dates: start: 20160415, end: 20160418
  7. XARELTO [Concomitant]
     Active Substance: RIVAROXABAN
     Indication: CARDIAC FAILURE
     Dosage: 20 MG, QD
     Route: 065
     Dates: start: 201704
  8. METOPROLOL. [Concomitant]
     Active Substance: METOPROLOL
     Indication: HYPERTENSION
     Dosage: 190 MG, QD
     Route: 065
     Dates: start: 20170120
  9. ZYLORIC [Concomitant]
     Active Substance: ALLOPURINOL
     Indication: BLOOD URIC ACID ABNORMAL
     Dosage: 300 MG, QD
     Route: 065
     Dates: start: 20160421, end: 20160421
  10. TOREM [Concomitant]
     Active Substance: TORSEMIDE
     Indication: HYPERTENSION
     Dosage: 15 MG, QD
     Route: 065
     Dates: start: 20170127
  11. TASIGNA [Suspect]
     Active Substance: NILOTINIB
     Dosage: 300 MG, QD
     Route: 048
     Dates: end: 20171129
  12. ALLOPURINOL. [Concomitant]
     Active Substance: ALLOPURINOL
     Indication: HYPERTENSION
     Dosage: 300 MG, QD
     Route: 065
     Dates: start: 20150626
  13. AMLODIPINE [Concomitant]
     Active Substance: AMLODIPINE BESYLATE
     Indication: HYPERTENSION
     Dosage: 10 MG, QD
     Route: 065
     Dates: start: 20160418, end: 20160421
  14. PARACETAMOL [Concomitant]
     Active Substance: ACETAMINOPHEN
     Indication: PAIN
     Dosage: 1 G, QD
     Route: 065
     Dates: start: 20160415, end: 20160415
  15. ATORVASTATIN [Concomitant]
     Active Substance: ATORVASTATIN
     Indication: HYPERCHOLESTEROLAEMIA
     Dosage: 20 MG, QD
     Route: 065
     Dates: start: 201703, end: 2017
  16. ALDACTONE [Concomitant]
     Active Substance: SPIRONOLACTONE
     Dosage: 25 MG, QD
     Route: 065
  17. HYDROCHLOROTHIAZIDE. [Concomitant]
     Active Substance: HYDROCHLOROTHIAZIDE
     Indication: HYPERTENSION
     Dosage: 12.5 MG, QD
     Route: 065
     Dates: start: 20150630
  18. DIPIDOLOR [Concomitant]
     Active Substance: PIRITRAMIDE
     Indication: PAIN
     Dosage: 7.5 MG, QD
     Route: 065
     Dates: start: 20160414, end: 20160414
  19. CLOPIDOGREL [Concomitant]
     Active Substance: CLOPIDOGREL BISULFATE
     Indication: CARDIAC FAILURE
     Dosage: 75 MG, QD
     Route: 065
     Dates: start: 201702, end: 20170801

REACTIONS (32)
  - Aspiration [Fatal]
  - Lacrimation increased [Unknown]
  - Dyspnoea [Unknown]
  - Nausea [Unknown]
  - Respiratory failure [Fatal]
  - Respiratory arrest [Fatal]
  - Pneumonia aspiration [Fatal]
  - Renal failure [Fatal]
  - Angina pectoris [Unknown]
  - Hypertensive crisis [Recovered/Resolved]
  - Atrial fibrillation [Not Recovered/Not Resolved]
  - Rhinorrhoea [Recovered/Resolved]
  - Post procedural haemorrhage [Recovered/Resolved]
  - Inguinal hernia [Recovered/Resolved]
  - Cardiac failure chronic [Unknown]
  - Brain oedema [Fatal]
  - Cardiac failure [Recovering/Resolving]
  - Acute coronary syndrome [Not Recovered/Not Resolved]
  - Cholelithiasis [Recovered/Resolved]
  - Pancreatitis acute [Recovered/Resolved]
  - Fatigue [Not Recovered/Not Resolved]
  - Hypoxia [Fatal]
  - Stenosis [Recovered/Resolved]
  - Chest discomfort [Unknown]
  - Vomiting [Unknown]
  - Cardiac arrest [Fatal]
  - Pneumonia [Fatal]
  - Coronary artery stenosis [Recovered/Resolved]
  - Orthopnoea [Unknown]
  - Abdominal pain upper [Unknown]
  - Hypokalaemia [Recovered/Resolved]
  - Cholestasis [Recovered/Resolved]

NARRATIVE: CASE EVENT DATE: 20150812
